FAERS Safety Report 10208917 (Version 1)
Quarter: 2014Q2

REPORT INFORMATION
  Report Type: Spontaneous
  Country: US (occurrence: US)
  Receive Date: 20140530
  Receipt Date: 20140530
  Transmission Date: 20141212
  Serious: Yes (Hospitalization)
  Sender: FDA-Public Use
  Company Number: US-PFIZER INC-2014146472

PATIENT
  Age: 51 Year
  Sex: Male

DRUGS (4)
  1. TYGACIL [Suspect]
     Indication: STAPHYLOCOCCAL INFECTION
     Dosage: 50 MG, 2X/DAY
     Route: 042
     Dates: start: 201405, end: 201405
  2. NORCO [Concomitant]
     Dosage: UNK
  3. BYSTOLIC [Concomitant]
     Dosage: UNK
  4. ZOCOR [Concomitant]
     Dosage: UNK

REACTIONS (2)
  - Pancreatitis [Recovering/Resolving]
  - Pain [Recovering/Resolving]
